FAERS Safety Report 19126531 (Version 1)
Quarter: 2021Q2

REPORT INFORMATION
  Report Type: Spontaneous
  Country: US (occurrence: US)
  Receive Date: 20210412
  Receipt Date: 20210412
  Transmission Date: 20210717
  Serious: No
  Sender: FDA-Public Use
  Company Number: None

PATIENT
  Age: 66 Year
  Sex: Female
  Weight: 89.36 kg

DRUGS (1)
  1. RASUVO [Suspect]
     Active Substance: METHOTREXATE SODIUM
     Indication: PSORIATIC ARTHROPATHY
     Dosage: INJECT 10MG (0.2ML) SUBCUTANEOULSY ONCE WKLY ON SAME DA;Y EACH WEEK AS DIRECTED?
     Route: 058
     Dates: start: 202011

REACTIONS (2)
  - Bronchitis [None]
  - Therapy interrupted [None]
